FAERS Safety Report 16307021 (Version 6)
Quarter: 2020Q3

REPORT INFORMATION
  Report Type: Report from Study
  Country: AU (occurrence: AU)
  Receive Date: 20190513
  Receipt Date: 20200814
  Transmission Date: 20201102
  Serious: Yes (Hospitalization, Other)
  Sender: FDA-Public Use
  Company Number: AU-BIOGEN-2018BI00557381

PATIENT
  Age: 39 Year
  Sex: Female

DRUGS (3)
  1. PLEGRIDY [Suspect]
     Active Substance: PEGINTERFERON BETA-1A
     Indication: MULTIPLE SCLEROSIS
     Route: 058
     Dates: start: 20180411
  2. TOPAMAX [Concomitant]
     Active Substance: TOPIRAMATE
     Indication: PRODUCT USED FOR UNKNOWN INDICATION
     Route: 065
  3. LOSEC [Concomitant]
     Active Substance: OMEPRAZOLE
     Indication: GASTRIC DISORDER
     Route: 050

REACTIONS (20)
  - Hyperparathyroidism [Not Recovered/Not Resolved]
  - Loss of control of legs [Recovered/Resolved]
  - Electrolyte imbalance [Unknown]
  - Influenza like illness [Recovered/Resolved]
  - Injection site erythema [Recovered/Resolved with Sequelae]
  - Diarrhoea [Recovered/Resolved]
  - Gastric disorder [Unknown]
  - Liver function test increased [Unknown]
  - Thyroid adenoma [Not Recovered/Not Resolved]
  - Hemiparesis [Not Recovered/Not Resolved]
  - White blood cell count increased [Unknown]
  - Abdominal pain [Recovered/Resolved]
  - Skin abrasion [Recovered/Resolved]
  - Muscle spasms [Not Recovered/Not Resolved]
  - Fall [Recovered/Resolved]
  - Blood calcium decreased [Recovered/Resolved]
  - Muscular weakness [Not Recovered/Not Resolved]
  - Malaise [Not Recovered/Not Resolved]
  - Tachycardia [Recovered/Resolved]
  - Sensory disturbance [Not Recovered/Not Resolved]

NARRATIVE: CASE EVENT DATE: 20180411
